FAERS Safety Report 5478872-1 (Version None)
Quarter: 2007Q4

REPORT INFORMATION
  Report Type: 
  Country: None (occurrence: None)
  Receive Date: 20071002
  Receipt Date: 20070918
  Transmission Date: 20080405
  Serious: Yes (Hospitalization, Disabling)
  Sender: FDA-Public Use
  Company Number: RENA-12258

PATIENT
  Age: 42 Year
  Sex: Male
  Weight: 65 kg

DRUGS (6)
  1. RENAGEL [Suspect]
     Indication: HYPERPHOSPHATAEMIA
     Dates: end: 20070601
  2. FABRAZYME [Suspect]
     Indication: FABRY'S DISEASE
     Dosage: 65 MG Q2WKS IV
     Route: 042
     Dates: start: 20061107, end: 20070717
  3. AMLODIPINE [Concomitant]
  4. PHOSLO [Concomitant]
  5. NEPHROCAPS [Concomitant]
  6. COZAAR [Concomitant]

REACTIONS (1)
  - CEREBROVASCULAR ACCIDENT [None]
